FAERS Safety Report 14364781 (Version 1)
Quarter: 2018Q1

REPORT INFORMATION
  Report Type: Spontaneous
  Country: US (occurrence: US)
  Receive Date: 20180106
  Receipt Date: 20180106
  Transmission Date: 20180509
  Serious: Yes (Disabling)
  Sender: FDA-Public Use
  Company Number: None

PATIENT
  Age: 79 Year
  Sex: Male
  Weight: 112.5 kg

DRUGS (11)
  1. ALLOPURINOL. [Suspect]
     Active Substance: ALLOPURINOL
     Indication: GOUT
     Dosage: ?          QUANTITY:1 TABLET(S);?
     Route: 048
  2. PROSTRATE ESSENTIALS [Concomitant]
  3. UBIQUINOL [Concomitant]
     Active Substance: UBIQUINOL
  4. D-3 [Concomitant]
     Active Substance: CHOLECALCIFEROL
  5. ZEAXANTHIN [Concomitant]
     Active Substance: ZEAXANTHIN
  6. LUTEIN [Concomitant]
     Active Substance: LUTEIN
  7. FISH OIL [Concomitant]
     Active Substance: FISH OIL
  8. ALLOPURINOL. [Suspect]
     Active Substance: ALLOPURINOL
     Indication: BLOOD URIC ACID INCREASED
     Dosage: ?          QUANTITY:1 TABLET(S);?
     Route: 048
  9. VITAMIN B [Concomitant]
     Active Substance: VITAMIN B
  10. MULTI [Concomitant]
  11. TUMERIC [Concomitant]
     Active Substance: HERBALS\TURMERIC

REACTIONS (4)
  - Blood pressure increased [None]
  - Laboratory test abnormal [None]
  - Nerve injury [None]
  - Balance disorder [None]

NARRATIVE: CASE EVENT DATE: 20170101
